FAERS Safety Report 5830592-7 (Version None)
Quarter: 2008Q3

REPORT INFORMATION
  Report Type: 
  Country: None (occurrence: None)
  Receive Date: 20080801
  Receipt Date: 20070807
  Transmission Date: 20090109
  Serious: Yes (Hospitalization)
  Sender: FDA-Public Use
  Company Number: US-BRISTOL-MYERS SQUIBB COMPANY-13869953

PATIENT
  Age: 85 Year
  Sex: Female
  Weight: 61 kg

DRUGS (1)
  1. COUMADIN [Suspect]
     Indication: THROMBOSIS
     Route: 048

REACTIONS (5)
  - HAEMORRHAGE [None]
  - INCREASED TENDENCY TO BRUISE [None]
  - INTERNATIONAL NORMALISED RATIO FLUCTUATION [None]
  - SKIN ATROPHY [None]
  - SKIN ULCER [None]
